FAERS Safety Report 17756336 (Version 11)
Quarter: 2021Q4

REPORT INFORMATION
  Report Type: Report from Study
  Country: FR (occurrence: None)
  Receive Date: 20200507
  Receipt Date: 20211129
  Transmission Date: 20220303
  Serious: Yes (Hospitalization)
  Sender: FDA-Public Use
  Company Number: FR-ROCHE-2549660

PATIENT
  Age: 74 Year
  Sex: Female
  Weight: 60 kg

DRUGS (41)
  1. IPATASERTIB [Suspect]
     Active Substance: IPATASERTIB
     Indication: Triple negative breast cancer
     Dosage: ON DAYS 1-21 OF EACH 28 DAY CYCLE?DATE OF MOST RECENT DOSE PRIOR TO EVENT ACUTE KIDNEY INJURY AND FI
     Route: 048
     Dates: start: 20200205
  2. ATEZOLIZUMAB [Suspect]
     Active Substance: ATEZOLIZUMAB
     Indication: Triple negative breast cancer
     Dosage: ON DAYS 1 AND 15 OF EACH 28 DAY CYCLE?DATE OF MOST RECENT DOSE PRIOR TO EVENT ONSET: 05/FEB/2020 (FR
     Route: 042
     Dates: start: 20200205
  3. PACLITAXEL [Suspect]
     Active Substance: PACLITAXEL
     Indication: Triple negative breast cancer
     Dosage: ON DAYS 1, 8, AND 15 OF EACH 28 DAY CYCLE?DATE OF MOST RECENT DOSE PRIOR TO EVENT  ACUTE KIDNEY INJU
     Route: 042
     Dates: start: 20200205
  4. ONDANSETRON [Concomitant]
     Active Substance: ONDANSETRON
     Route: 042
     Dates: start: 20200205, end: 20200212
  5. RANITIDINE HYDROCHLORIDE [Concomitant]
     Active Substance: RANITIDINE HYDROCHLORIDE
     Route: 042
     Dates: start: 20200205, end: 20200212
  6. POLARAMINE [Concomitant]
     Active Substance: DEXCHLORPHENIRAMINE MALEATE
     Indication: Prophylaxis
     Route: 042
     Dates: start: 20200205
  7. SOLU-MEDROL [Concomitant]
     Active Substance: METHYLPREDNISOLONE SODIUM SUCCINATE
     Indication: Prophylaxis
     Route: 042
     Dates: start: 20200205, end: 20200212
  8. SKENAN [Concomitant]
     Active Substance: MORPHINE SULFATE
     Indication: Chest pain
     Route: 048
     Dates: start: 20200131, end: 20200203
  9. SKENAN [Concomitant]
     Active Substance: MORPHINE SULFATE
     Route: 048
     Dates: start: 20200207
  10. SKENAN [Concomitant]
     Active Substance: MORPHINE SULFATE
     Route: 048
     Dates: start: 20200204, end: 20200206
  11. MORPHINE SULFATE [Concomitant]
     Active Substance: MORPHINE SULFATE
     Indication: Chest pain
     Route: 048
     Dates: start: 20200204
  12. MORPHINE SULFATE [Concomitant]
     Active Substance: MORPHINE SULFATE
     Route: 048
     Dates: start: 20200131, end: 20200203
  13. LEVOCETIRIZINE [Concomitant]
     Active Substance: LEVOCETIRIZINE
     Indication: Prophylaxis
     Route: 048
     Dates: start: 20200205
  14. ACETAMINOPHEN [Concomitant]
     Active Substance: ACETAMINOPHEN
     Indication: Chest pain
     Route: 048
     Dates: start: 20200131
  15. ACETAMINOPHEN [Concomitant]
     Active Substance: ACETAMINOPHEN
     Indication: Pyrexia
     Route: 048
     Dates: start: 20200212
  16. FERINJECT [Concomitant]
     Active Substance: FERRIC CARBOXYMALTOSE
     Indication: Anaemia
     Route: 042
     Dates: start: 20200212, end: 20200212
  17. OXYCODONE HYDROCHLORIDE [Concomitant]
     Active Substance: OXYCODONE HYDROCHLORIDE
     Indication: Chest pain
     Route: 048
     Dates: start: 20200212
  18. OXYCONTIN [Concomitant]
     Active Substance: OXYCODONE HYDROCHLORIDE
     Indication: Chest pain
     Route: 048
     Dates: start: 20200212
  19. PRIMPERAN [Concomitant]
     Active Substance: METOCLOPRAMIDE HYDROCHLORIDE
     Indication: Nausea
     Route: 048
     Dates: start: 20200212
  20. CALCIPARINE [Concomitant]
     Active Substance: HEPARIN CALCIUM
     Indication: Pneumonia
     Route: 058
     Dates: start: 20200212
  21. AUGMENTIN [Concomitant]
     Active Substance: AMOXICILLIN\CLAVULANATE POTASSIUM
     Indication: Pneumonia
     Route: 048
     Dates: start: 20200208, end: 20200215
  22. AUGMENTIN [Concomitant]
     Active Substance: AMOXICILLIN\CLAVULANATE POTASSIUM
     Indication: Pyrexia
  23. PHLOROGLUCINOL [Concomitant]
     Active Substance: PHLOROGLUCINOL
     Indication: Pain prophylaxis
     Route: 048
     Dates: start: 20200214
  24. PIPERACILLIN SODIUM\TAZOBACTAM SODIUM [Concomitant]
     Active Substance: PIPERACILLIN SODIUM\TAZOBACTAM SODIUM
     Indication: Pyrexia
     Route: 048
     Dates: start: 20200215, end: 20200221
  25. PIPERACILLIN SODIUM\TAZOBACTAM SODIUM [Concomitant]
     Active Substance: PIPERACILLIN SODIUM\TAZOBACTAM SODIUM
     Indication: Pneumonia
  26. LOVENOX [Concomitant]
     Active Substance: ENOXAPARIN SODIUM
     Indication: Pneumonia
     Route: 058
     Dates: start: 20200212, end: 20200308
  27. LEVOTHYROXINE [Concomitant]
     Active Substance: LEVOTHYROXINE
     Indication: Hypothyroidism
     Route: 048
     Dates: start: 2019
  28. MEROPENEM [Concomitant]
     Active Substance: MEROPENEM
     Indication: Pneumonia
     Route: 042
     Dates: start: 20200223, end: 20200228
  29. VOGALENE [Concomitant]
     Active Substance: METOPIMAZINE
     Dosage: 3 UNIT
     Route: 048
     Dates: start: 20200309
  30. AMOXICILLIN [Concomitant]
     Active Substance: AMOXICILLIN
     Indication: Endocarditis
     Route: 042
     Dates: start: 20200309, end: 20200413
  31. CLOXACILLIN [Concomitant]
     Active Substance: CLOXACILLIN
     Indication: Infective thrombosis
     Route: 042
     Dates: start: 20200309
  32. LOPERAMIDE [Concomitant]
     Active Substance: LOPERAMIDE
     Route: 048
     Dates: start: 20200205, end: 20200211
  33. LOPERAMIDE [Concomitant]
     Active Substance: LOPERAMIDE
     Route: 048
     Dates: start: 20200212
  34. HERBALS\VITIS VINIFERA LEAF [Concomitant]
     Active Substance: HERBALS\VITIS VINIFERA LEAF
     Indication: Vascular pain
     Route: 048
     Dates: start: 2014
  35. GENTAMICIN [Concomitant]
     Active Substance: GENTAMICIN
     Indication: Infective thrombosis
     Dosage: MEDICATION DOSE 1 U
     Route: 042
     Dates: start: 202003
  36. RIFAMPIN [Concomitant]
     Active Substance: RIFAMPIN
     Indication: Infective thrombosis
     Dosage: MEDICATION DOSE 1 U
     Route: 048
     Dates: start: 202003
  37. SODIUM CHLORIDE [Concomitant]
     Active Substance: SODIUM CHLORIDE
     Indication: Dehydration
     Route: 042
     Dates: start: 20200212, end: 20200213
  38. POTASSIUM CHLORIDE [Concomitant]
     Active Substance: POTASSIUM CHLORIDE
     Indication: Dehydration
     Route: 042
     Dates: start: 20200212, end: 20200213
  39. CIPROFLOXACIN [Concomitant]
     Active Substance: CIPROFLOXACIN
     Indication: Pneumonia
     Route: 048
     Dates: start: 20200222, end: 20200228
  40. CALCIUM PHOSPHATE, DIBASIC, ANHYDROUS\MAGNESIUM GLYCEROPHOSPHATE\PHOSP [Concomitant]
     Active Substance: CALCIUM PHOSPHATE, DIBASIC, ANHYDROUS\MAGNESIUM GLYCEROPHOSPHATE\PHOSPHORIC ACID\SODIUM PHOSPHATE, D
     Indication: Hypophosphataemia
     Route: 048
     Dates: start: 20200223, end: 20200309
  41. POTASSIUM CHLORIDE [Concomitant]
     Active Substance: POTASSIUM CHLORIDE
     Indication: Hypokalaemia
     Route: 048
     Dates: start: 20200309, end: 20200311

REACTIONS (4)
  - Acute kidney injury [Recovered/Resolved]
  - Diarrhoea [Recovered/Resolved]
  - Clostridium colitis [Recovered/Resolved]
  - Diarrhoea [Recovered/Resolved]

NARRATIVE: CASE EVENT DATE: 20200211
